FAERS Safety Report 9607892 (Version 1)
Quarter: 2013Q4

REPORT INFORMATION
  Report Type: Spontaneous
  Country: US (occurrence: None)
  Receive Date: 20131008
  Receipt Date: 20131008
  Transmission Date: 20140711
  Serious: Yes (Disabling)
  Sender: FDA-Public Use
  Company Number: None

PATIENT
  Age: 81 Year
  Sex: Male
  Weight: 77.11 kg

DRUGS (1)
  1. CIPRO HC 2% HCL--10 ML ALCON [Suspect]
     Indication: EAR INFECTION
     Dates: start: 20130528

REACTIONS (1)
  - Arthropathy [None]
